FAERS Safety Report 24176033 (Version 1)
Quarter: 2024Q3

REPORT INFORMATION
  Report Type: Spontaneous
  Country: US (occurrence: US)
  Receive Date: 20240806
  Receipt Date: 20240806
  Transmission Date: 20241016
  Serious: No
  Sender: SANOFI AVENTIS
  Company Number: US-SA-SAC20240729000255

PATIENT
  Sex: Male

DRUGS (1)
  1. DUPIXENT [Suspect]
     Active Substance: DUPILUMAB
     Indication: Dermatitis atopic
     Dosage: 300 MG, QOW
     Route: 058

REACTIONS (11)
  - Weight increased [Unknown]
  - Fatigue [Unknown]
  - Eye infection [Unknown]
  - Lacrimation increased [Unknown]
  - Myalgia [Unknown]
  - Arthralgia [Unknown]
  - Eczema [Unknown]
  - Pain [Unknown]
  - Blister [Unknown]
  - Dry skin [Unknown]
  - Skin fissures [Unknown]
